FAERS Safety Report 4489050-7 (Version None)
Quarter: 2004Q4

REPORT INFORMATION
  Report Type: 
  Country: None (occurrence: None)
  Receive Date: 20041029
  Receipt Date: 20030605
  Transmission Date: 20050328
  Serious: Yes (Hospitalization, Disabling)
  Sender: FDA-Public Use
  Company Number: US-MERCK-0306USA00792

PATIENT
  Age: 69 Year
  Sex: Female
  Weight: 75 kg

DRUGS (2)
  1. VIOXX [Suspect]
     Route: 048
     Dates: start: 20000101
  2. PRILOSEC [Concomitant]
     Route: 065

REACTIONS (27)
  - ADVERSE EVENT [None]
  - ASTHENIA [None]
  - BENIGN INTRACRANIAL HYPERTENSION [None]
  - BRONCHITIS [None]
  - CEREBRAL ISCHAEMIA [None]
  - DEAFNESS [None]
  - DEPRESSION [None]
  - DIABETES MELLITUS [None]
  - DIZZINESS [None]
  - ENDOLYMPHATIC HYDROPS [None]
  - FATIGUE [None]
  - HEADACHE [None]
  - INCREASED UPPER AIRWAY SECRETION [None]
  - INJURY [None]
  - MUSCLE ATROPHY [None]
  - MUSCLE CRAMP [None]
  - MUSCLE SPASMS [None]
  - MYALGIA [None]
  - MYOSITIS [None]
  - NERVOUSNESS [None]
  - NON-CARDIAC CHEST PAIN [None]
  - OEDEMA PERIPHERAL [None]
  - PAIN [None]
  - PAPILLOEDEMA [None]
  - PRURITUS [None]
  - SKIN DISORDER [None]
  - SPINAL COLUMN STENOSIS [None]
